FAERS Safety Report 9426934 (Version 1)
Quarter: 2013Q3

REPORT INFORMATION
  Report Type: Report from Study
  Country: FR (occurrence: FR)
  Receive Date: 20130730
  Receipt Date: 20130730
  Transmission Date: 20140515
  Serious: Yes (Other)
  Sender: FDA-Public Use
  Company Number: FR-JNJFOC-20130716559

PATIENT
  Sex: Female

DRUGS (1)
  1. REMICADE [Suspect]
     Indication: OSTEOARTHRITIS
     Route: 042

REACTIONS (2)
  - Psoriasis [Unknown]
  - Joint destruction [Unknown]
